FAERS Safety Report 5208903-5 (Version None)
Quarter: 2007Q1

REPORT INFORMATION
  Report Type: 
  Country: None (occurrence: None)
  Receive Date: 20070116
  Receipt Date: 20070104
  Transmission Date: 20070707
  Serious: Yes (Hospitalization)
  Sender: FDA-Public Use
  Company Number: US-BRISTOL-MYERS SQUIBB COMPANY-13632278

PATIENT
  Age: 85 Year
  Sex: Female
  Weight: 58 kg

DRUGS (5)
  1. COUMADIN [Suspect]
     Indication: ATRIAL FIBRILLATION
     Dosage: 3MG X 5/WEEK 4MG X 2/WEEK
     Route: 048
  2. LANOXIN [Concomitant]
  3. ATACAND [Concomitant]
  4. TENORMIN [Concomitant]
  5. LASIX [Concomitant]

REACTIONS (3)
  - ECZEMA [None]
  - FALL [None]
  - SKIN DISCOLOURATION [None]
